FAERS Safety Report 6080752-8 (Version None)
Quarter: 2009Q1

REPORT INFORMATION
  Report Type: 
  Country: None (occurrence: None)
  Receive Date: 20090217
  Receipt Date: 20090204
  Transmission Date: 20090719
  Serious: Yes (Death, Other)
  Sender: FDA-Public Use
  Company Number: US-AVENTIS-200910119US

PATIENT
  Sex: Male

DRUGS (6)
  1. TAXOTERE [Suspect]
     Indication: PROSTATE CANCER METASTATIC
  2. TAXOTERE [Suspect]
     Dosage: DOSE: UNK
     Dates: start: 20081215
  3. TAXOTERE [Suspect]
     Dosage: DOSE: UNK
     Dates: start: 20081124
  4. TAXOTERE [Suspect]
     Dosage: DOSE: UNK
     Dates: start: 20081124
  5. PREDNISONE [Concomitant]
     Dosage: DOSE: UNK
  6. DEXAMETHASONE [Concomitant]
     Dosage: DOSE: UNK

REACTIONS (4)
  - ARRHYTHMIA [None]
  - CARDIAC DISORDER [None]
  - CARDIAC FAILURE CONGESTIVE [None]
  - OEDEMA PERIPHERAL [None]
